FAERS Safety Report 6370442-6 (Version None)
Quarter: 2009Q3

REPORT INFORMATION
  Report Type: 
  Country: None (occurrence: None)
  Receive Date: 20090921
  Receipt Date: 20090921
  Transmission Date: 20100115
  Serious: Yes (Other)
  Sender: FDA-Public Use
  Company Number: None

PATIENT
  Sex: Male
  Weight: 58.5 kg

DRUGS (1)
  1. LAMOTRIGINE [Suspect]
     Indication: CONVULSION
     Dosage: 4 TABS (100MG) BID P.O.
     Route: 048
     Dates: start: 20090401

REACTIONS (2)
  - PRODUCT SUBSTITUTION ISSUE [None]
  - TREMOR [None]
